FAERS Safety Report 5918005-8 (Version None)
Quarter: 2008Q4

REPORT INFORMATION
  Report Type: 
  Country: None (occurrence: None)
  Receive Date: 20081014
  Receipt Date: 20081006
  Transmission Date: 20090506
  Serious: Yes (Hospitalization)
  Sender: FDA-Public Use
  Company Number: JP-PFIZER INC-2008055329

PATIENT
  Age: 46 Year
  Sex: Male
  Weight: 61 kg

DRUGS (5)
  1. AZULFIDINE [Suspect]
     Indication: RHEUMATOID ARTHRITIS
     Route: 048
     Dates: start: 20080407, end: 20080505
  2. CELECOXIB [Suspect]
     Indication: PAIN
     Route: 048
     Dates: start: 20080407, end: 20080505
  3. OLMETEC [Concomitant]
     Route: 048
  4. ATELEC [Concomitant]
     Route: 048
  5. OMEPRAZOLE [Concomitant]
     Route: 048

REACTIONS (1)
  - DRUG RASH WITH EOSINOPHILIA AND SYSTEMIC SYMPTOMS [None]
